FAERS Safety Report 21065178 (Version 3)
Quarter: 2022Q4

REPORT INFORMATION
  Report Type: Spontaneous
  Country: JP (occurrence: JP)
  Receive Date: 20220711
  Receipt Date: 20221114
  Transmission Date: 20230112
  Serious: Yes (Other)
  Sender: FDA-Public Use
  Company Number: JP-GLAXOSMITHKLINE-JP2022JPN101853

PATIENT

DRUGS (1)
  1. VALTREX [Suspect]
     Active Substance: VALACYCLOVIR HYDROCHLORIDE
     Indication: Herpes zoster
     Dosage: 3000 MG/DAY
     Route: 048

REACTIONS (8)
  - Toxic encephalopathy [Unknown]
  - Herpes zoster meningoencephalitis [Unknown]
  - Depressed level of consciousness [Recovering/Resolving]
  - Renal impairment [Recovering/Resolving]
  - Altered state of consciousness [Unknown]
  - Disorientation [Unknown]
  - Dyslalia [Unknown]
  - Fall [Unknown]
